FAERS Safety Report 4560025-2 (Version None)
Quarter: 2005Q1

REPORT INFORMATION
  Report Type: 
  Country: None (occurrence: None)
  Receive Date: 20050125
  Receipt Date: 20050113
  Transmission Date: 20050727
  Serious: Yes (Other)
  Sender: FDA-Public Use
  Company Number: US-JNJFOC-20050103402

PATIENT
  Sex: Male

DRUGS (16)
  1. INFLIXIMAB [Suspect]
     Indication: RHEUMATOID ARTHRITIS
     Route: 042
  2. LANOXIN [Concomitant]
  3. ZOCOR [Concomitant]
  4. AVOPRO [Concomitant]
  5. ZOLOFT [Concomitant]
  6. SPIRONOLACTONE [Concomitant]
  7. SYNTHROID [Concomitant]
  8. FLOMAX [Concomitant]
  9. DEMADEX [Concomitant]
     Dosage: AS NEEDED
  10. IMURAN [Concomitant]
  11. FOSAMAX [Concomitant]
  12. MIACALCIN [Concomitant]
  13. FLONASE [Concomitant]
  14. ULTRAM [Concomitant]
  15. CALCIUM GLUCONATE [Concomitant]
  16. ASPIRIN [Concomitant]
     Dosage: 1/2 TABLET (325 MG TABLET) DAILY

REACTIONS (1)
  - MALIGNANT MELANOMA [None]
